FAERS Safety Report 4354522-2 (Version None)
Quarter: 2004Q2

REPORT INFORMATION
  Report Type: 
  Country: None (occurrence: None)
  Receive Date: 20040503
  Receipt Date: 20040423
  Transmission Date: 20050107
  Serious: Yes (Death, Hospitalization)
  Sender: FDA-Public Use
  Company Number: 2004-03-2185

PATIENT
  Age: 63 Year
  Sex: Male
  Weight: 90.7194 kg

DRUGS (5)
  1. PEG INTRON (INTERFERON ALFA-2B) INJECTABLE POWDER [Suspect]
     Indication: HEPATITIS C
     Dosage: 150 MCG QWK
     Dates: start: 20031022, end: 20040101
  2. REBETOL [Suspect]
     Indication: HEPATITIS C
     Dosage: 800 MG QD
     Dates: start: 20031022, end: 20040101
  3. SPIRONOLACTONE [Concomitant]
  4. DIRECTIC [Concomitant]
  5. LASIX [Concomitant]

REACTIONS (5)
  - FULL BLOOD COUNT DECREASED [None]
  - HYPOTENSION [None]
  - IMMUNOSUPPRESSION [None]
  - MENINGITIS CRYPTOCOCCAL [None]
  - MULTI-ORGAN FAILURE [None]
